FAERS Safety Report 6126744-1 (Version None)
Quarter: 2009Q1

REPORT INFORMATION
  Report Type: 
  Country: None (occurrence: None)
  Receive Date: 20090320
  Receipt Date: 20080710
  Transmission Date: 20090719
  Serious: No
  Sender: FDA-Public Use
  Company Number: US-ABBOTT-08P-163-0462165-00

PATIENT
  Sex: Female

DRUGS (1)
  1. ERYTHROMYCIN BASE [Suspect]
     Indication: DRUG USE FOR UNKNOWN INDICATION

REACTIONS (5)
  - BACK PAIN [None]
  - NASOPHARYNGITIS [None]
  - NAUSEA [None]
  - UNEVALUABLE EVENT [None]
  - VOMITING [None]
